FAERS Safety Report 22772854 (Version 2)
Quarter: 2024Q1

REPORT INFORMATION
  Report Type: Report from Study
  Country: BR (occurrence: BR)
  Receive Date: 20230801
  Receipt Date: 20240120
  Transmission Date: 20240410
  Serious: Yes (Other)
  Sender: FDA-Public Use
  Company Number: BR-JNJFOC-20221247226

PATIENT
  Age: 64 Year
  Sex: Female
  Weight: 75 kg

DRUGS (6)
  1. INFLIXIMAB [Suspect]
     Active Substance: INFLIXIMAB
     Indication: Crohn^s disease
     Dosage: DOSAGE REPORTED AS 4 AMPOULES OF 100 MG
     Route: 041
     Dates: start: 2019
  2. INFLIXIMAB [Suspect]
     Active Substance: INFLIXIMAB
     Dosage: DOSAGE REPORTED AS 4 AMPOULES OF 100 MG
     Route: 041
     Dates: start: 202306
  3. REMICADE [Suspect]
     Active Substance: INFLIXIMAB
     Indication: Crohn^s disease
     Dosage: 4 PHIAL AMPOULES OF 100 MG
     Route: 041
  4. REMICADE [Suspect]
     Active Substance: INFLIXIMAB
     Dosage: 4 PHIAL AMPOULES OF 100 MG
     Route: 041
  5. INFLIXIMAB [Suspect]
     Active Substance: INFLIXIMAB
     Indication: Crohn^s disease
     Dosage: THE PATIENT USED BIOSIMILAR IN THE MONTHS OF DEC-2022, JAN-2023, FEB-2023 AND MAR-2023
     Route: 065
     Dates: start: 202211
  6. INFLIXIMAB [Suspect]
     Active Substance: INFLIXIMAB
     Route: 065

REACTIONS (3)
  - Breast cancer [Unknown]
  - Crohn^s disease [Recovering/Resolving]
  - Off label use [Unknown]
